FAERS Safety Report 7579367-1 (Version None)
Quarter: 2011Q2

REPORT INFORMATION
  Report Type: 
  Country: None (occurrence: None)
  Receive Date: 20110629
  Receipt Date: 20110627
  Transmission Date: 20111010
  Serious: Yes (Death)
  Sender: FDA-Public Use
  Company Number: US-BRISTOL-MYERS SQUIBB COMPANY-15759574

PATIENT
  Age: 68 Year
  Sex: Female
  Weight: 59 kg

DRUGS (16)
  1. SODIUM CROMOGLICATE [Concomitant]
     Dates: start: 20110101
  2. VITAMIN B-12 [Concomitant]
     Dates: start: 20110405
  3. PROMETHAZINE [Concomitant]
     Dates: start: 20110322
  4. ESTRADIOL [Concomitant]
     Dates: start: 19950101
  5. ASPIRIN [Concomitant]
     Dates: start: 20110322
  6. MECLIZINE HCL [Concomitant]
     Dates: start: 20110101
  7. PRILOSEC [Concomitant]
     Dates: start: 19990101
  8. DITROPAN XL [Concomitant]
     Dates: start: 19950101
  9. VERPAMIL HCL [Concomitant]
     Dates: start: 19900101
  10. FOLIC ACID [Concomitant]
     Dates: start: 20110405
  11. LEVOTHYROXINE SODIUM [Concomitant]
     Dates: start: 19980101
  12. CISPLATIN [Suspect]
     Indication: NON-SMALL CELL LUNG CANCER
     Dosage: LAST DOSE:2MAY11
     Route: 042
     Dates: start: 20110411, end: 20110512
  13. COMPAZINE [Concomitant]
     Dates: start: 20110405
  14. DEXAMETHASONE [Concomitant]
     Dates: start: 20110405
  15. PEMETREXED DISODIUM [Suspect]
     Indication: NON-SMALL CELL LUNG CANCER
     Dosage: LAST DOSE:2MAY11
     Route: 042
     Dates: start: 20110411, end: 20110512
  16. XANAX [Concomitant]
     Dates: start: 19900101

REACTIONS (1)
  - MYOCARDIAL INFARCTION [None]
